FAERS Safety Report 16410107 (Version 5)
Quarter: 2019Q4

REPORT INFORMATION
  Report Type: Report from Study
  Country: IT (occurrence: IT)
  Receive Date: 20190610
  Receipt Date: 20191122
  Transmission Date: 20200122
  Serious: Yes (Hospitalization, Other)
  Sender: FDA-Public Use
  Company Number: IT-MYLANLABS-2019M1053419

PATIENT
  Age: 65 Year
  Sex: Female
  Weight: 55 kg

DRUGS (23)
  1. TRASTUZUMAB. [Suspect]
     Active Substance: TRASTUZUMAB
     Indication: HER-2 POSITIVE BREAST CANCER
     Dosage: 440 MILLIGRAM, 3XW
     Route: 042
     Dates: start: 20180507, end: 20180507
  2. PERTUZUMAB. [Suspect]
     Active Substance: PERTUZUMAB
     Indication: HER-2 POSITIVE BREAST CANCER
     Dosage: 840 MILLIGRAM, 3XW
     Route: 042
     Dates: start: 20180507, end: 20180507
  3. DUROGESIC [Concomitant]
     Active Substance: FENTANYL
     Dosage: UNK
     Route: 065
     Dates: start: 20180502
  4. CEFEPIME [Concomitant]
     Active Substance: CEFEPIME HYDROCHLORIDE
     Indication: FEBRILE NEUTROPENIA
     Dosage: ONGOING = NOT CHECKED
     Route: 065
     Dates: start: 20180626
  5. RANITIDINE. [Concomitant]
     Active Substance: RANITIDINE
     Dosage: UNK
     Route: 065
     Dates: start: 20180507, end: 20181002
  6. LEVOFLOXACIN. [Concomitant]
     Active Substance: LEVOFLOXACIN
     Indication: FEBRILE NEUTROPENIA
     Dosage: ONGOING = NOT CHECKED
     Route: 065
     Dates: start: 20180626, end: 20180727
  7. TAXOL [Suspect]
     Active Substance: PACLITAXEL
     Indication: BREAST CANCER
     Dosage: 80 MILLIGRAM/SQ. METER, QW
     Route: 042
     Dates: start: 20180731, end: 20181023
  8. POLASE                             /06428001/ [Concomitant]
     Indication: HYPOKALAEMIA
     Route: 065
     Dates: start: 20180615, end: 20180626
  9. SOLDESAM [Concomitant]
     Active Substance: DEXAMETHASONE
     Dosage: UNK
     Route: 065
     Dates: start: 20180502
  10. ZOLOFT [Concomitant]
     Active Substance: SERTRALINE HYDROCHLORIDE
     Dosage: UNK
     Route: 065
     Dates: start: 20160803
  11. DIBASE [Concomitant]
     Active Substance: CHOLECALCIFEROL
     Dosage: UNK
     Route: 065
     Dates: start: 20180727
  12. DEXAMETHASONE. [Concomitant]
     Active Substance: DEXAMETHASONE
     Dosage: UNK
     Route: 065
     Dates: start: 20180507, end: 20181002
  13. CHLORPHENAMINE [Concomitant]
     Active Substance: CHLORPHENIRAMINE MALEATE
     Dosage: ONGOING = CHECKED
     Route: 065
     Dates: start: 20180507
  14. NATECAL [Concomitant]
     Active Substance: CALCIUM CARBONATE\CHOLECALCIFEROL
     Dosage: UNK
     Route: 065
     Dates: end: 20180618
  15. MYCOSTATIN [Concomitant]
     Active Substance: NYSTATIN
     Indication: DYSPHAGIA
     Dosage: UNK
     Route: 065
  16. PLASIL                             /00041901/ [Concomitant]
     Active Substance: METOCLOPRAMIDE
     Indication: NAUSEA
     Dosage: UNK, ONGOING = NOT CHECKED
     Route: 065
     Dates: start: 20180625, end: 20180731
  17. AMIKACINA                          /00391001/ [Concomitant]
     Active Substance: AMIKACIN
     Indication: FEBRILE NEUTROPENIA
     Dosage: UNK, ONGOING = NOT CHECKED
     Route: 065
     Dates: start: 20180630, end: 20180702
  18. EUTIROX [Concomitant]
     Active Substance: LEVOTHYROXINE SODIUM
     Dosage: UNK
     Route: 065
  19. BISOPROLOLO [Concomitant]
     Active Substance: BISOPROLOL FUMARATE
     Dosage: ONGOING = NOT CHECKED
     Route: 065
     Dates: end: 20180615
  20. TEICOPLANIN [Concomitant]
     Active Substance: TEICOPLANIN
     Indication: FEBRILE NEUTROPENIA
     Dosage: ONGOING = NOT CHECKED
     Route: 065
     Dates: start: 20180702, end: 20180717
  21. TAXOTERE [Suspect]
     Active Substance: DOCETAXEL
     Indication: HER-2 POSITIVE BREAST CANCER
     Dosage: 75 MILLIGRAM/SQ. METER, 3XW
     Route: 042
     Dates: start: 20180507, end: 20180619
  22. ENAPREN [Concomitant]
     Active Substance: ENALAPRIL MALEATE
     Dosage: ONGOING = NOT CHECKED
     Route: 065
     Dates: end: 20180615
  23. FLUCONAZOLE. [Concomitant]
     Active Substance: FLUCONAZOLE
     Indication: DYSGEUSIA
     Dosage: UNK
     Route: 065
     Dates: start: 20180626, end: 20180627

REACTIONS (10)
  - Fatigue [Recovered/Resolved]
  - Performance status decreased [Recovered/Resolved]
  - Palmar-plantar erythrodysaesthesia syndrome [Recovered/Resolved]
  - Dysphagia [Recovered/Resolved]
  - Hypokalaemia [Recovered/Resolved]
  - Diarrhoea [Recovered/Resolved]
  - Dysgeusia [Recovered/Resolved]
  - Nausea [Recovered/Resolved]
  - Dysaesthesia [Unknown]
  - Febrile neutropenia [Recovered/Resolved]

NARRATIVE: CASE EVENT DATE: 20180615
